FAERS Safety Report 4649756-3 (Version None)
Quarter: 2005Q2

REPORT INFORMATION
  Report Type: 
  Country: None (occurrence: None)
  Receive Date: 20050428
  Receipt Date: 20050414
  Transmission Date: 20051028
  Serious: Yes (Other)
  Sender: FDA-Public Use
  Company Number: SUS1-2005-00292

PATIENT

DRUGS (1)
  1. MESALAZINE CONTROLLED RELEASE (MESALAZINE) CAPSULE CR [Suspect]
     Indication: INFLAMMATORY BOWEL DISEASE

REACTIONS (1)
  - RENAL FAILURE [None]
